FAERS Safety Report 7576701 (Version 6)
Quarter: 2015Q4

REPORT INFORMATION
  Report Type: Report from Study
  Country: IN (occurrence: IN)
  Receive Date: 20100908
  Receipt Date: 20151027
  Transmission Date: 20160305
  Serious: No
  Sender: FDA-Public Use
  Company Number: PHHO2010IN13264

PATIENT
  Age: 24 Year
  Sex: Female
  Weight: 38 kg

DRUGS (11)
  1. BLINDED ENALAPRIL [Suspect]
     Active Substance: ENALAPRIL
     Dosage: DOUBLE BLIND
     Route: 048
     Dates: end: 20100901
  2. BLINDED NO TREATMENT RECEIVED [Suspect]
     Active Substance: INVESTIGATIONAL PRODUCT
     Dosage: DOUBLE BLIND
     Route: 048
     Dates: end: 20100901
  3. FERRIC HYDROXIDE POLYMALTOSE [Concomitant]
     Indication: PRODUCT USED FOR UNKNOWN INDICATION
     Route: 065
  4. COMPARATOR ENALAPRIL [Suspect]
     Active Substance: ENALAPRIL
     Indication: CARDIAC FAILURE
     Dosage: UNK
     Route: 048
     Dates: start: 20100310, end: 20100901
  5. BLINDED ALISKIREN [Suspect]
     Active Substance: ALISKIREN
     Dosage: DOUBLE BLIND
     Route: 048
     Dates: end: 20100901
  6. ALISKIREN [Suspect]
     Active Substance: ALISKIREN
     Indication: CARDIAC FAILURE
     Dosage: UNK
     Route: 048
     Dates: start: 20100416, end: 20100901
  7. CARVEDILOL. [Concomitant]
     Active Substance: CARVEDILOL
     Indication: CARDIAC FAILURE
     Dosage: UNK
     Route: 065
  8. FRUSEMIDE [Concomitant]
     Active Substance: FUROSEMIDE
     Indication: CARDIAC FAILURE
     Dosage: UNK
     Route: 065
  9. DIGOXIN. [Concomitant]
     Active Substance: DIGOXIN
     Indication: CARDIAC FAILURE
     Dosage: UNK
     Route: 065
  10. FOLIC ACID. [Concomitant]
     Active Substance: FOLIC ACID
     Indication: PRODUCT USED FOR UNKNOWN INDICATION
     Route: 065
  11. ZINCOVIT (VARIOUS VITAMINS AND MINERALS) [Concomitant]
     Indication: PRODUCT USED FOR UNKNOWN INDICATION
     Route: 065

REACTIONS (2)
  - Exposure during pregnancy [Unknown]
  - Dysfunctional uterine bleeding [Recovered/Resolved]

NARRATIVE: CASE EVENT DATE: 20100428
